FAERS Safety Report 8957418 (Version 1)
Quarter: 2012Q4

REPORT INFORMATION
  Report Type: Report from Study
  Country: FR (occurrence: FR)
  Receive Date: 20121210
  Receipt Date: 20121210
  Transmission Date: 20130627
  Serious: Yes (Hospitalization, Other)
  Sender: FDA-Public Use
  Company Number: FR-ROCHE-742859

PATIENT
  Age: 51 Year
  Sex: Female

DRUGS (6)
  1. MABTHERA [Suspect]
     Indication: RHEUMATOID ARTHRITIS
     Dosage: FREQUENCY: CYCLE, FORM INFUSION
     Route: 042
  2. MABTHERA [Suspect]
     Dosage: PATIENT RECEIVED THIRD AND LAST CYCLE.
     Route: 042
     Dates: start: 20080930, end: 20100518
  3. METHOTREXATE [Concomitant]
     Route: 065
  4. VOLTAREN [Concomitant]
     Indication: PAIN
     Dosage: ACCORDING TO PAIN
     Route: 065
  5. INIPOMP [Concomitant]
     Route: 065
  6. SPECIAFOLDINE [Concomitant]

REACTIONS (2)
  - Malignant melanoma [Recovered/Resolved]
  - Malignant melanoma [Recovered/Resolved]
